FAERS Safety Report 9089263 (Version 1)
Quarter: 2013Q1

REPORT INFORMATION
  Report Type: Spontaneous
  Country: ZA (occurrence: ZA)
  Receive Date: 20130201
  Receipt Date: 20130201
  Transmission Date: 20140127
  Serious: Yes (Hospitalization)
  Sender: FDA-Public Use
  Company Number: ZA-009507513-1301ZAF013658

PATIENT
  Age: 40 Year
  Sex: Female

DRUGS (1)
  1. ESMERON [Suspect]
     Indication: MUSCLE RELAXANT THERAPY
     Dosage: UNK UNK, ONCE

REACTIONS (2)
  - Dyspnoea [Recovered/Resolved]
  - Delayed recovery from anaesthesia [Recovered/Resolved]
